FAERS Safety Report 11745718 (Version 1)
Quarter: 2015Q4

REPORT INFORMATION
  Report Type: Spontaneous
  Country: US (occurrence: US)
  Receive Date: 20151117
  Receipt Date: 20151117
  Transmission Date: 20160304
  Serious: Yes (Hospitalization, Other)
  Sender: FDA-Public Use
  Company Number: US-ACTAVIS-2015-24721

PATIENT
  Age: 82 Year
  Sex: Female

DRUGS (2)
  1. PARACETAMOL (UNKNOWN) [Suspect]
     Active Substance: ACETAMINOPHEN
     Indication: PRODUCT USED FOR UNKNOWN INDICATION
     Dosage: TAKING MULTIPLE PILLS
     Route: 048
  2. QUETIAPINE (AGPTC) [Suspect]
     Active Substance: QUETIAPINE
     Indication: PARANOIA
     Dosage: TAKING MULTIPLE PILLS
     Route: 048

REACTIONS (5)
  - Bradycardia [Recovered/Resolved]
  - Lethargy [Recovered/Resolved]
  - Hypoxia [Recovered/Resolved]
  - Hypotension [Recovered/Resolved]
  - Accidental overdose [Recovered/Resolved]
